FAERS Safety Report 5294637-8 (Version None)
Quarter: 2007Q2

REPORT INFORMATION
  Report Type: 
  Country: None (occurrence: None)
  Receive Date: 20070412
  Receipt Date: 20070410
  Transmission Date: 20071010
  Serious: Yes (Other)
  Sender: FDA-Public Use
  Company Number: JP-JPN-A200701585

PATIENT
  Age: 6 Year
  Sex: Male

DRUGS (3)
  1. RELENZA [Suspect]
     Indication: INFLUENZA
     Dosage: 10MG TWICE PER DAY
     Route: 055
     Dates: start: 20070304, end: 20070308
  2. ONON [Concomitant]
     Route: 048
  3. FLOMOX [Concomitant]
     Route: 048

REACTIONS (1)
  - DELIRIUM [None]
